FAERS Safety Report 10522854 (Version 2)
Quarter: 2014Q4

REPORT INFORMATION
  Report Type: Spontaneous
  Country: DE (occurrence: DE)
  Receive Date: 20141016
  Receipt Date: 20141016
  Transmission Date: 20150528
  Serious: Yes (Hospitalization, Other)
  Sender: FDA-Public Use
  Company Number: DE-PFIZER INC-2014263126

PATIENT
  Age: 78 Year
  Sex: Male
  Weight: 80 kg

DRUGS (5)
  1. XALKORI [Suspect]
     Active Substance: CRIZOTINIB
     Indication: NON-SMALL CELL LUNG CANCER
     Dosage: 250 MG, 2X/DAY
     Route: 048
     Dates: start: 201407, end: 201409
  2. PANTOZOL [Concomitant]
     Active Substance: PANTOPRAZOLE SODIUM
     Dosage: 40 (UNSPECIFIED UNITS), DAILY
     Route: 048
  3. TOREM [Concomitant]
     Active Substance: TORSEMIDE
     Dosage: 20  (UNSPECIFIED UNITS), DAILY
     Route: 048
  4. SIMVASTATIN. [Concomitant]
     Active Substance: SIMVASTATIN
     Dosage: 20 (UNSPECIFIED UNITS), DAILY
     Route: 048
  5. FINASTERID [Concomitant]
     Dosage: 5 MG/2DAY
     Route: 048

REACTIONS (3)
  - Organising pneumonia [Not Recovered/Not Resolved]
  - Sinus arrest [Recovered/Resolved]
  - Bradycardia [Recovered/Resolved]

NARRATIVE: CASE EVENT DATE: 2014
